FAERS Safety Report 4459357-8 (Version None)
Quarter: 2004Q3

REPORT INFORMATION
  Report Type: 
  Country: None (occurrence: None)
  Receive Date: 20040927
  Receipt Date: 20040722
  Transmission Date: 20050211
  Serious: Yes (Death, Congenital Anomaly)
  Sender: FDA-Public Use
  Company Number: GB-BRISTOL-MYERS SQUIBB COMPANY-12647988

PATIENT

DRUGS (3)
  1. VIDEX [Suspect]
     Indication: HIV INFECTION
     Route: 064
  2. ZIDOVUDINE [Suspect]
     Indication: HIV INFECTION
     Route: 064
  3. VIRAMUNE [Suspect]
     Indication: HIV INFECTION
     Route: 064

REACTIONS (3)
  - CONGENITAL ANOMALY [None]
  - PREGNANCY [None]
  - STILLBIRTH [None]
